FAERS Safety Report 9771743 (Version 4)
Quarter: 2014Q1

REPORT INFORMATION
  Report Type: Spontaneous
  Country: DE (occurrence: DE)
  Receive Date: 20131219
  Receipt Date: 20140102
  Transmission Date: 20141002
  Serious: Yes (Hospitalization)
  Sender: FDA-Public Use
  Company Number: DE-AMGEN-DEUSP2013084928

PATIENT
  Age: 64 Year
  Sex: Female
  Weight: 65 kg

DRUGS (17)
  1. NEULASTA [Suspect]
     Indication: PROPHYLAXIS
     Dosage: 6 MG, DAY 2 AFTER CHEMOTHERAPY
     Route: 058
     Dates: start: 20131127, end: 20131127
  2. PACLITAXEL ALBUMIN [Suspect]
     Indication: BREAST CANCER
     Dosage: 330 MG/M2, 14 DAYS
     Route: 065
     Dates: start: 20131029, end: 20131126
  3. EPIRUBICIN [Concomitant]
     Indication: BREAST CANCER
     Dosage: 150 MG/M2, 14 DAYS
     Dates: start: 20130917, end: 20131015
  4. CIPROFLOXACIN [Concomitant]
     Dosage: 500 MG, UNK
     Dates: start: 20131130
  5. IVEMEND [Concomitant]
     Dosage: 150 MG, UNK
     Dates: start: 20131126, end: 20131126
  6. DEXAMETHASON                       /00016001/ [Concomitant]
     Dosage: 8 MG, UNK
     Dates: start: 20131126, end: 20131128
  7. ONDANSETRON [Concomitant]
     Dosage: 8 MG, UNK
     Dates: start: 20131126, end: 20131126
  8. NEBILET [Concomitant]
     Dosage: 5 UNK, 1/2-0-0
  9. CARMEN                             /00740901/ [Concomitant]
     Dosage: 10 MG, 1-0-0
  10. PAROXAT [Concomitant]
     Dosage: 20 MG, 1-0-0
  11. DEKRISTOL [Concomitant]
     Dosage: 20.000 IU, ONCE WEEKLY
  12. FOLIC ACID [Concomitant]
     Dosage: 5 UNK, 1-0-0
  13. AMINEURIN [Concomitant]
     Dosage: UNK, 10-0-0-25
  14. GABAPENTIN [Concomitant]
     Dosage: 100 UNK, 1-1-1
  15. NOVALGIN                           /06276704/ [Concomitant]
     Dosage: UNK, 5 X 40 GUTTAE
  16. HALDOL                             /00027401/ [Concomitant]
     Dosage: UNK, 3 X 5 GUTTAE
  17. MOVICOL                            /01625101/ [Concomitant]
     Dosage: UNK UNK, 1-0-0

REACTIONS (4)
  - Pain [Recovered/Resolved]
  - Bone pain [Recovered/Resolved]
  - General physical health deterioration [Recovered/Resolved]
  - Arthralgia [Unknown]
